FAERS Safety Report 5720913-8 (Version None)
Quarter: 2008Q2

REPORT INFORMATION
  Report Type: 
  Country: None (occurrence: None)
  Receive Date: 20080429
  Receipt Date: 20080424
  Transmission Date: 20081010
  Serious: Yes (Life-Threatening, Hospitalization)
  Sender: FDA-Public Use
  Company Number: FR-AVENTIS-200811547FR

PATIENT
  Age: 80 Year
  Sex: Female

DRUGS (10)
  1. LASILIX                            /00032601/ [Suspect]
     Route: 048
     Dates: start: 20070901
  2. PREVISCAN                          /00789001/ [Suspect]
     Route: 048
  3. DIGITALINE NATIVELLE [Suspect]
     Route: 048
     Dates: start: 20070901
  4. PRAXILENE [Concomitant]
     Indication: DRUG USE FOR UNKNOWN INDICATION
     Route: 048
  5. OMEPRAZOLE [Concomitant]
     Indication: DRUG USE FOR UNKNOWN INDICATION
  6. DELURSAN [Concomitant]
     Indication: DRUG USE FOR UNKNOWN INDICATION
     Route: 048
  7. AMLOR [Concomitant]
     Indication: DRUG USE FOR UNKNOWN INDICATION
     Route: 048
  8. CORDARONE [Concomitant]
     Indication: DRUG USE FOR UNKNOWN INDICATION
  9. FORLAX [Concomitant]
     Indication: DRUG USE FOR UNKNOWN INDICATION
     Route: 048
  10. SEROPLEX [Concomitant]
     Indication: DRUG USE FOR UNKNOWN INDICATION
     Route: 048

REACTIONS (5)
  - CARDIOACTIVE DRUG LEVEL INCREASED [None]
  - DRUG LEVEL INCREASED [None]
  - HYPOKALAEMIA [None]
  - INTERNATIONAL NORMALISED RATIO INCREASED [None]
  - RENAL FAILURE [None]
